FAERS Safety Report 16953831 (Version 1)
Quarter: 2019Q4

REPORT INFORMATION
  Report Type: Report from Study
  Country: GB (occurrence: GB)
  Receive Date: 20191023
  Receipt Date: 20191023
  Transmission Date: 20200122
  Serious: Yes (Other)
  Sender: FDA-Public Use
  Company Number: PHHY2015GB005814

PATIENT
  Age: 53 Year
  Sex: Female

DRUGS (1)
  1. GILENYA [Suspect]
     Active Substance: FINGOLIMOD HYDROCHLORIDE
     Indication: MULTIPLE SCLEROSIS
     Dosage: 0.5 MG, QD
     Route: 048
     Dates: start: 20130516

REACTIONS (13)
  - Lymphocyte count decreased [Unknown]
  - Non-cardiac chest pain [Recovered/Resolved]
  - Tremor [Unknown]
  - Visual impairment [Unknown]
  - Anxiety [Unknown]
  - Pain in extremity [Recovered/Resolved]
  - Cystitis [Unknown]
  - Musculoskeletal stiffness [Unknown]
  - Fatigue [Unknown]
  - Lower respiratory tract infection [Recovered/Resolved]
  - Headache [Recovered/Resolved]
  - Back pain [Recovered/Resolved]
  - Head titubation [Unknown]

NARRATIVE: CASE EVENT DATE: 20130621
